FAERS Safety Report 5799490-1 (Version None)
Quarter: 2008Q3

REPORT INFORMATION
  Report Type: 
  Country: None (occurrence: None)
  Receive Date: 20080703
  Receipt Date: 20080702
  Transmission Date: 20090109
  Serious: Yes (Other)
  Sender: FDA-Public Use
  Company Number: US-BAYER-200821221NA

PATIENT
  Age: 23 Year
  Sex: Female

DRUGS (1)
  1. MIRENA [Suspect]
     Indication: CONTRACEPTION
     Route: 015
     Dates: start: 20060101

REACTIONS (6)
  - ABDOMINAL DISTENSION [None]
  - COMPLICATION OF DEVICE REMOVAL [None]
  - IUD MIGRATION [None]
  - MENSTRUATION IRREGULAR [None]
  - POST PROCEDURAL HAEMORRHAGE [None]
  - PROCEDURAL PAIN [None]
